FAERS Safety Report 10169544 (Version 3)
Quarter: 2014Q4

REPORT INFORMATION
  Report Type: Spontaneous
  Country: IT (occurrence: IT)
  Receive Date: 20140513
  Receipt Date: 20141210
  Transmission Date: 20150528
  Serious: Yes (Hospitalization, Other)
  Sender: FDA-Public Use
  Company Number: IT-B.I. PHARMACEUTICALS,INC./RIDGEFIELD-2014-BI-20896GD

PATIENT
  Age: 85 Year
  Sex: Male

DRUGS (2)
  1. PRADAXA [Suspect]
     Active Substance: DABIGATRAN ETEXILATE MESYLATE
     Indication: ATRIAL FIBRILLATION
     Dosage: 110 MG
     Route: 048
     Dates: start: 201306, end: 20131113
  2. ACETYLSALICYLIC ACID [Suspect]
     Active Substance: ASPIRIN
     Indication: PRODUCT USED FOR UNKNOWN INDICATION
     Route: 065
     Dates: end: 20131113

REACTIONS (11)
  - Increased tendency to bruise [Unknown]
  - Parainfluenzae virus infection [Unknown]
  - Melaena [Unknown]
  - Dehydration [Unknown]
  - Haemorrhagic disorder [Unknown]
  - Anaemia [Unknown]
  - Rectal haemorrhage [Unknown]
  - Diarrhoea [Unknown]
  - Renal impairment [Unknown]
  - Epistaxis [Unknown]
  - Drug level increased [Unknown]

NARRATIVE: CASE EVENT DATE: 20131113
